FAERS Safety Report 8277017-2 (Version None)
Quarter: 2012Q2

REPORT INFORMATION
  Report Type: 
  Country: None (occurrence: None)
  Receive Date: 20120412
  Receipt Date: 20120329
  Transmission Date: 20120825
  Serious: Yes (Other)
  Sender: FDA-Public Use
  Company Number: JP-ROCHE-1056542

PATIENT
  Sex: Male

DRUGS (5)
  1. MAGMITT [Concomitant]
     Route: 048
  2. AMOBAN [Concomitant]
     Route: 048
  3. COPEGUS [Suspect]
     Indication: HEPATIC CIRRHOSIS
     Route: 048
     Dates: start: 20111005, end: 20111130
  4. PEGINTERFERON ALFA-2A [Suspect]
     Indication: HEPATIC CIRRHOSIS
     Route: 058
     Dates: start: 20111005, end: 20111116
  5. URSO 250 [Concomitant]
     Indication: HEPATIC CIRRHOSIS
     Route: 048

REACTIONS (1)
  - HYPOAESTHESIA [None]
